FAERS Safety Report 7724841-8 (Version None)
Quarter: 2011Q3

REPORT INFORMATION
  Report Type: 
  Country: None (occurrence: None)
  Receive Date: 20110901
  Receipt Date: 20110822
  Transmission Date: 20111222
  Serious: Yes (Other)
  Sender: FDA-Public Use
  Company Number: US-BAYER-201036940NA

PATIENT
  Age: 36 Year
  Sex: Female
  Weight: 67.12 kg

DRUGS (3)
  1. MAXALT [Concomitant]
     Indication: MIGRAINE
     Dosage: 10 MG, UNK
     Dates: start: 20070503, end: 20070913
  2. ZOLPIDEM [Concomitant]
     Dosage: 10 MG, QD
     Route: 048
     Dates: start: 20071002
  3. YASMIN [Suspect]
     Indication: CONTRACEPTION
     Dosage: UNK
     Route: 048
     Dates: start: 20040401, end: 20080601

REACTIONS (3)
  - CHOLELITHIASIS [None]
  - ABDOMINAL PAIN [None]
  - GALLBLADDER DISORDER [None]
